FAERS Safety Report 10497598 (Version 1)
Quarter: 2014Q4

REPORT INFORMATION
  Report Type: Spontaneous
  Country: TR (occurrence: None)
  Receive Date: 20141002
  Receipt Date: 20141002
  Transmission Date: 20150528
  Serious: Yes (Hospitalization)
  Sender: FDA-Public Use
  Company Number: 7323752

PATIENT
  Age: 56 Year
  Sex: Male

DRUGS (1)
  1. EUTHYROX [Suspect]
     Active Substance: LEVOTHYROXINE SODIUM
     Indication: THYROID DISORDER
     Route: 048
     Dates: start: 2005

REACTIONS (6)
  - Abdominal distension [None]
  - Hypohidrosis [None]
  - Hernia [None]
  - Dry mouth [None]
  - Weight increased [None]
  - Dehydration [None]

NARRATIVE: CASE EVENT DATE: 2009
